FAERS Safety Report 7486203-0 (Version None)
Quarter: 2011Q2

REPORT INFORMATION
  Report Type: 
  Country: None (occurrence: None)
  Receive Date: 20110517
  Receipt Date: 20110505
  Transmission Date: 20111010
  Serious: Yes (Other)
  Sender: FDA-Public Use
  Company Number: DE-UCBSA-032331

PATIENT
  Age: 81 Year
  Sex: Female

DRUGS (3)
  1. VIMPAT [Suspect]
     Route: 042
  2. METOPROLOL SUCCINATE [Concomitant]
  3. KEPPRA [Concomitant]

REACTIONS (1)
  - ATRIOVENTRICULAR BLOCK COMPLETE [None]
